FAERS Safety Report 6978086-X (Version None)
Quarter: 2010Q3

REPORT INFORMATION
  Report Type: 
  Country: None (occurrence: None)
  Receive Date: 20100913
  Receipt Date: 20100830
  Transmission Date: 20110219
  Serious: Yes (Hospitalization, Other)
  Sender: FDA-Public Use
  Company Number: US-ELI_LILLY_AND_COMPANY-US201007001300

PATIENT
  Sex: Female
  Weight: 53.061 kg

DRUGS (18)
  1. FORTEO [Suspect]
     Indication: OSTEOPOROSIS
     Dosage: 20 UG, DAILY (1/D)
  2. SIMVASTATIN [Concomitant]
  3. CENTRUM SILVER [Concomitant]
  4. AMLODIPINE [Concomitant]
     Indication: HYPERTENSION
  5. LEVOTHYROXINE SODIUM [Concomitant]
  6. PRILOSEC [Concomitant]
     Indication: GASTROOESOPHAGEAL REFLUX DISEASE
  7. LISINOPRIL [Concomitant]
  8. CALCIUM 600 PLUS VITAMIN D [Concomitant]
  9. ASPIRIN [Concomitant]
  10. HYDROCHLOROTHIAZIDE [Concomitant]
  11. FISH OIL [Concomitant]
  12. IRON [Concomitant]
  13. VITAMIN D [Concomitant]
  14. HYDROXYZINE [Concomitant]
  15. AMBIEN [Concomitant]
     Indication: SLEEP DISORDER
  16. TRAMADOL HCL [Concomitant]
     Indication: PAIN
  17. TYLENOL (CAPLET) [Concomitant]
  18. STOOL SOFTENER [Concomitant]

REACTIONS (6)
  - BLOOD CALCIUM INCREASED [None]
  - BONE PAIN [None]
  - EMBOLIC STROKE [None]
  - FALL [None]
  - HYPOACUSIS [None]
  - SPINAL COLUMN INJURY [None]
